FAERS Safety Report 6254883-3 (Version None)
Quarter: 2009Q3

REPORT INFORMATION
  Report Type: 
  Country: None (occurrence: None)
  Receive Date: 20090702
  Receipt Date: 20090622
  Transmission Date: 20100115
  Serious: Yes (Other)
  Sender: FDA-Public Use
  Company Number: US-PFIZER INC-2009231608

PATIENT
  Sex: Female

DRUGS (7)
  1. NEURONTIN [Suspect]
     Indication: NEURALGIA
     Dosage: 2400 MG, 1X/DAY
  2. SOMA [Concomitant]
     Indication: MUSCLE SPASMS
     Dosage: UNK
  3. NORCO [Concomitant]
     Indication: MUSCLE SPASMS
     Dosage: UNK
  4. CYMBALTA [Concomitant]
     Indication: NEUROPATHY PERIPHERAL
     Dosage: UNK
  5. CYMBALTA [Concomitant]
     Indication: DEPRESSION
  6. LIDODERM [Concomitant]
     Indication: PAIN
     Dosage: UNK
     Route: 062
  7. VOLTAREN [Concomitant]
     Indication: PAIN
     Dosage: UNK
     Route: 061

REACTIONS (3)
  - EAR INFECTION [None]
  - NEURALGIA [None]
  - SCIATICA [None]
